FAERS Safety Report 19608244 (Version 2)
Quarter: 2022Q3

REPORT INFORMATION
  Report Type: Spontaneous
  Country: JP (occurrence: JP)
  Receive Date: 20210726
  Receipt Date: 20220627
  Transmission Date: 20221026
  Serious: Yes (Hospitalization)
  Sender: FDA-Public Use
  Company Number: JP-NOVARTISPH-NVSJ2021JP008797

PATIENT
  Age: 38 Year
  Sex: Female

DRUGS (2)
  1. GLYCOPYRROLATE\INDACATEROL\MOMETASONE FUROATE [Suspect]
     Active Substance: GLYCOPYRROLATE\INDACATEROL\MOMETASONE FUROATE
     Indication: Cough variant asthma
     Dosage: 1 DF, HIGH (INDACATEROL ACETATE 150UG, GLYCOPYRRONIUM BROMIDE 50UG, MOMETASONE FUROATE 160UG
     Route: 055
  2. GLYCOPYRROLATE\INDACATEROL\MOMETASONE FUROATE [Suspect]
     Active Substance: GLYCOPYRROLATE\INDACATEROL\MOMETASONE FUROATE
     Dosage: 1 DF, MEDIUM (INDACATEROL ACETATE 150UG, GLYCOPYRRONIUM BROMIDE 50UG, MOMETASONE FUROATE 80UG
     Route: 055

REACTIONS (2)
  - Nasopharyngitis [Recovered/Resolved]
  - Cough [Recovered/Resolved]
